FAERS Safety Report 11159310 (Version 3)
Quarter: 2015Q3

REPORT INFORMATION
  Report Type: Report from Study
  Country: JP (occurrence: JP)
  Receive Date: 20150603
  Receipt Date: 20150810
  Transmission Date: 20151125
  Serious: Yes (Hospitalization)
  Sender: FDA-Public Use
  Company Number: JP-HORIZON-BUP-0004-2015

PATIENT
  Age: 5 Year
  Sex: Female
  Weight: 28 kg

DRUGS (10)
  1. SODIUM BENZOATE [Concomitant]
     Active Substance: SODIUM BENZOATE
     Indication: ORNITHINE TRANSCARBAMOYLASE DEFICIENCY
     Route: 048
  2. PHOSRIBBON [Concomitant]
     Route: 048
     Dates: start: 20140403, end: 20150323
  3. LACTULOSE. [Concomitant]
     Active Substance: LACTULOSE
     Indication: ORNITHINE TRANSCARBAMOYLASE DEFICIENCY
     Route: 048
     Dates: start: 20150127, end: 20150323
  4. LIORESAL [Concomitant]
     Active Substance: BACLOFEN
     Route: 048
     Dates: start: 20130903, end: 20150323
  5. URALYT [Concomitant]
     Active Substance: POTASSIUM CITRATE\TRISODIUM CITRATE DIHYDRATE
     Route: 048
     Dates: start: 20140403, end: 20150323
  6. BUPHENYL [Suspect]
     Active Substance: SODIUM PHENYLBUTYRATE
     Indication: ORNITHINE TRANSCARBAMOYLASE DEFICIENCY
     Dosage: INITIALLY STARTED WITH 8 G THREE TIMES DAILY
     Route: 048
     Dates: start: 20130524, end: 20150127
  7. AMIYU [Concomitant]
     Indication: ORNITHINE TRANSCARBAMOYLASE DEFICIENCY
     Route: 048
  8. JUSO [Concomitant]
     Active Substance: SODIUM BICARBONATE
     Route: 048
     Dates: start: 20140403, end: 20150323
  9. CARNITINE CHLORIDE [Concomitant]
     Indication: ORNITHINE TRANSCARBAMOYLASE DEFICIENCY
     Route: 048
  10. PHENOBAL [Concomitant]
     Active Substance: PHENOBARBITAL
     Route: 048
     Dates: start: 20130903, end: 20150323

REACTIONS (2)
  - Hyperammonaemia [Recovering/Resolving]
  - Amino acid level abnormal [Recovering/Resolving]

NARRATIVE: CASE EVENT DATE: 20150120
